FAERS Safety Report 7478188-8 (Version None)
Quarter: 2011Q2

REPORT INFORMATION
  Report Type: 
  Country: None (occurrence: None)
  Receive Date: 20110513
  Receipt Date: 20110503
  Transmission Date: 20111010
  Serious: Yes (Other)
  Sender: FDA-Public Use
  Company Number: PHHY2010BR56503

PATIENT
  Age: 70 Year
  Sex: Female

DRUGS (2)
  1. VALIUM [Concomitant]
     Indication: PAIN
     Dosage: 10 MG, IN THE MORNING AND AT NIGHT
     Route: 048
     Dates: start: 19990101
  2. DICLOFENAC SODIUM [Suspect]
     Indication: ARTHRALGIA
     Dosage: 4 DF, BID (4 TABLETS IN THE MORNING AND 4 TABLETS AT NIGHT A DAY)
     Route: 048
     Dates: start: 19990101

REACTIONS (5)
  - OSTEOARTHRITIS [None]
  - INGUINAL HERNIA [None]
  - INCORRECT DOSE ADMINISTERED [None]
  - WEIGHT DECREASED [None]
  - WEIGHT ABNORMAL [None]
